FAERS Safety Report 11218898 (Version 1)
Quarter: 2015Q2

REPORT INFORMATION
  Report Type: Spontaneous
  Country: DE (occurrence: DE)
  Receive Date: 20150625
  Receipt Date: 20150625
  Transmission Date: 20150821
  Serious: Yes (Death)
  Sender: FDA-Public Use
  Company Number: DE-BAXTER-2015BAX033926

PATIENT
  Age: 46 Year
  Sex: Male

DRUGS (1)
  1. PHYSIONEAL 40 GLUCOSE 1,36 % W/V 13,6 MG/ML PERITONEALDIALYSELOSUNG [Suspect]
     Active Substance: CALCIUM CHLORIDE\MAGNESIUM CHLORIDE\SODIUM CHLORIDE\SODIUM LACTATE
     Indication: PERITONEAL DIALYSIS
     Dosage: 3 BAGS
     Route: 033
     Dates: start: 20140628

REACTIONS (1)
  - Death [Fatal]

NARRATIVE: CASE EVENT DATE: 20150613
